FAERS Safety Report 12265825 (Version 1)
Quarter: 2016Q2

REPORT INFORMATION
  Report Type: Spontaneous
  Country: RO (occurrence: RO)
  Receive Date: 20160413
  Receipt Date: 20160413
  Transmission Date: 20160815
  Serious: Yes (Life-Threatening)
  Sender: FDA-Public Use
  Company Number: PHHY2016RO044659

PATIENT
  Age: 75 Year
  Sex: Female

DRUGS (6)
  1. BETASERC [Concomitant]
     Active Substance: BETAHISTINE
     Indication: VERTEBROBASILAR INSUFFICIENCY
     Dosage: 24 MG, QD
     Route: 048
  2. ASPENTER [Concomitant]
     Active Substance: ASPIRIN
     Indication: MYOCARDIAL ISCHAEMIA
     Dosage: 75 MG, QD
     Route: 048
  3. BETALOC//METOPROLOL SUCCINATE [Concomitant]
     Indication: HYPERTENSION
     Dosage: 50 MG, QD
     Route: 048
  4. FOSAVANCE [Concomitant]
     Active Substance: ALENDRONATE SODIUM\CHOLECALCIFEROL
     Indication: OSTEOPOROSIS
     Dosage: 1 DF, QW (70 MG/5600 UI)
     Route: 048
  5. SORTIS [Concomitant]
     Active Substance: ATORVASTATIN
     Indication: DYSLIPIDAEMIA
     Dosage: 10 MG, QD
     Route: 048
  6. EXFORGE [Suspect]
     Active Substance: AMLODIPINE BESYLATE\VALSARTAN
     Indication: HYPERTENSION
     Dosage: 1 DF, QD
     Route: 048
     Dates: start: 20150615, end: 20150720

REACTIONS (1)
  - Gravitational oedema [Recovered/Resolved]

NARRATIVE: CASE EVENT DATE: 201507
